FAERS Safety Report 8238696-9 (Version None)
Quarter: 2012Q1

REPORT INFORMATION
  Report Type: 
  Country: None (occurrence: None)
  Receive Date: 20120327
  Receipt Date: 20120315
  Transmission Date: 20120608
  Serious: No
  Sender: FDA-Public Use
  Company Number: US-BAYER-2012-027004

PATIENT
  Age: 75 Year
  Sex: Female
  Weight: 76 kg

DRUGS (8)
  1. HYDROCHLOROTHIAZIDE [Concomitant]
  2. VITAMIN B-12 [Concomitant]
  3. TWO KINDS OF INSULIN [Concomitant]
  4. SIMVASTATIN [Concomitant]
  5. LEVOTHYROXINE SODIUM [Concomitant]
  6. LOSARTAN POTASSIUM [Concomitant]
  7. ALEVE (CAPLET) [Suspect]
     Indication: PRODUCT USED FOR UNKNOWN INDICATION
     Dosage: 2 DF, QD
     Route: 048
  8. ATORVASTATIN [Concomitant]

REACTIONS (2)
  - PAIN [None]
  - OEDEMA PERIPHERAL [None]
